FAERS Safety Report 18410420 (Version 1)
Quarter: 2020Q4

REPORT INFORMATION
  Report Type: Spontaneous
  Country: DE (occurrence: DE)
  Receive Date: 20201021
  Receipt Date: 20201021
  Transmission Date: 20210114
  Serious: Yes (Hospitalization, Other)
  Sender: FDA-Public Use
  Company Number: NVSC2020DE281570

PATIENT
  Sex: Female

DRUGS (1)
  1. GILENYA [Suspect]
     Active Substance: FINGOLIMOD HYDROCHLORIDE
     Indication: MULTIPLE SCLEROSIS
     Dosage: 1 DF, QD
     Route: 065
     Dates: start: 20140601

REACTIONS (9)
  - Renal neoplasm [Unknown]
  - Cyst [Unknown]
  - Herpes virus infection [Unknown]
  - Ear pain [Unknown]
  - Nausea [Unknown]
  - Pneumonitis [Unknown]
  - Pneumonia [Unknown]
  - Cerebral haemorrhage [Unknown]
  - Progressive multiple sclerosis [Unknown]
